FAERS Safety Report 13890547 (Version 5)
Quarter: 2017Q3

REPORT INFORMATION
  Report Type: Spontaneous
  Country: CN (occurrence: CN)
  Receive Date: 20170822
  Receipt Date: 20170920
  Transmission Date: 20171127
  Serious: Yes (Life-Threatening)
  Sender: FDA-Public Use
  Company Number: CN-ROCHE-1981998

PATIENT
  Age: 65 Year
  Sex: Male
  Weight: 77.8 kg

DRUGS (2)
  1. ACTILYSE [Suspect]
     Active Substance: ALTEPLASE
     Indication: CEREBRAL INFARCTION
  2. ACTILYSE [Suspect]
     Active Substance: ALTEPLASE
     Indication: THROMBOLYSIS
     Route: 042
     Dates: start: 20170815

REACTIONS (5)
  - Cyanosis [Unknown]
  - Cough [Unknown]
  - Incorrect dosage administered [Unknown]
  - Swollen tongue [Unknown]
  - Productive cough [Unknown]

NARRATIVE: CASE EVENT DATE: 20170815
